FAERS Safety Report 5609776-9 (Version None)
Quarter: 2008Q1

REPORT INFORMATION
  Report Type: 
  Country: None (occurrence: None)
  Receive Date: 20080131
  Receipt Date: 20071207
  Transmission Date: 20080703
  Serious: No
  Sender: FDA-Public Use
  Company Number: US-BAYER-200714101BCC

PATIENT
  Age: 77 Year
  Sex: Male
  Weight: 91 kg

DRUGS (7)
  1. ALEVE [Suspect]
     Indication: PAIN
     Dosage: AS USED: 220 MG  UNIT DOSE: 220 MG
     Route: 048
  2. CALCIUM GLUCONATE [Concomitant]
  3. GLUCOSAMINE [Concomitant]
  4. GINKO [Concomitant]
  5. ST. JOSEPH'S BABY ASPIRIN [Concomitant]
  6. HEALTH SUPPLEMENTS [Concomitant]
  7. HEART PREVENTATIVE [Concomitant]

REACTIONS (1)
  - ABDOMINAL PAIN UPPER [None]
